FAERS Safety Report 11251868 (Version 2)
Quarter: 2015Q3

REPORT INFORMATION
  Report Type: Spontaneous
  Country: US (occurrence: US)
  Receive Date: 20150708
  Receipt Date: 20150803
  Transmission Date: 20151125
  Serious: No
  Sender: FDA-Public Use
  Company Number: US-ELI_LILLY_AND_COMPANY-US201209000176

PATIENT
  Age: 37 Year
  Sex: Male

DRUGS (4)
  1. COGENTIN [Concomitant]
     Active Substance: BENZTROPINE MESYLATE
     Dosage: 1 MG, BID
  2. ATIVAN [Concomitant]
     Active Substance: LORAZEPAM
     Dosage: 0.5 MG, TID
  3. ZYPREXA RELPREVV [Suspect]
     Active Substance: OLANZAPINE PAMOATE
     Indication: SCHIZOPHRENIA, PARANOID TYPE
     Dosage: 300 MG, 2/M
     Dates: start: 20120820, end: 20120820
  4. ATIVAN [Concomitant]
     Active Substance: LORAZEPAM
     Dosage: 0.5 MG, UNK

REACTIONS (2)
  - Extrapyramidal disorder [Recovered/Resolved]
  - Tongue disorder [Recovered/Resolved]

NARRATIVE: CASE EVENT DATE: 20120823
